FAERS Safety Report 9442979 (Version 1)
Quarter: 2013Q3

REPORT INFORMATION
  Report Type: Report from Study
  Country: CA (occurrence: CA)
  Receive Date: 20130806
  Receipt Date: 20130806
  Transmission Date: 20140515
  Serious: Yes (Other)
  Sender: FDA-Public Use
  Company Number: CA-GENZYME-CAMP-1003052

PATIENT
  Age: 22 Year
  Sex: Female
  Weight: 55.2 kg

DRUGS (5)
  1. CAMPATH [Suspect]
     Indication: MULTIPLE SCLEROSIS
     Dosage: 12 MG, QD (CYCLE 1)
     Route: 042
     Dates: start: 20120305, end: 20120309
  2. CAMPATH [Suspect]
     Dosage: 12 MG, QD (CYCLE 2)
     Route: 042
     Dates: start: 20130311, end: 20130313
  3. IBUPROFEN [Concomitant]
     Indication: HEADACHE
     Dosage: UNK (200-400 MG, 1PRN)
     Route: 048
     Dates: start: 20111109
  4. FLUTICASONE [Concomitant]
     Indication: HYPERSENSITIVITY
     Dosage: QD (1-2 SPRAYS)
     Route: 045
     Dates: start: 20120628
  5. FERROUS SULFATE [Concomitant]
     Indication: HYPOCHROMIC ANAEMIA
     Dosage: 300 MG, QD
     Route: 048
     Dates: start: 20130207

REACTIONS (3)
  - Hypothyroidism [Unknown]
  - Suicide attempt [Unknown]
  - Overdose [Unknown]
